FAERS Safety Report 4491038-7 (Version None)
Quarter: 2004Q4

REPORT INFORMATION
  Report Type: 
  Country: None (occurrence: None)
  Receive Date: 20041027
  Receipt Date: 20041020
  Transmission Date: 20050328
  Serious: Yes (Hospitalization)
  Sender: FDA-Public Use
  Company Number: 200410514BYL

PATIENT
  Age: 88 Year
  Sex: Male
  Weight: 52 kg

DRUGS (5)
  1. CIPROFLOXACIN [Suspect]
     Indication: PNEUMONIA
     Dosage: SEE IMAGE
     Route: 041
     Dates: start: 20040928, end: 20040930
  2. CIPROFLOXACIN [Suspect]
     Indication: PNEUMONIA
     Dosage: SEE IMAGE
     Route: 041
     Dates: start: 20040927
  3. ISEPACIN (ISEPAMICIN SULFATE) [Suspect]
     Indication: PNEUMONIA
     Dosage: 400 MG, QD, INTRAVENOUS DRIP
     Route: 041
     Dates: start: 20040925, end: 20041009
  4. MEROPEN [Concomitant]
  5. PENTICILLIN [Concomitant]

REACTIONS (1)
  - INTERSTITIAL LUNG DISEASE [None]
